FAERS Safety Report 9017437 (Version 2)
Quarter: 2013Q2

REPORT INFORMATION
  Report Type: Spontaneous
  Country: JP (occurrence: JP)
  Receive Date: 20130117
  Receipt Date: 20130401
  Transmission Date: 20140414
  Serious: Yes (Other)
  Sender: FDA-Public Use
  Company Number: JP-ASTRAZENECA-2012SE44591

PATIENT
  Age: 85 Year
  Sex: Male
  Weight: 55 kg

DRUGS (1)
  1. NEXIUM [Suspect]
     Indication: GASTRIC ULCER
     Route: 050
     Dates: start: 20120403, end: 20120502

REACTIONS (1)
  - Jaundice [Recovered/Resolved]
